FAERS Safety Report 8758650 (Version 2)
Quarter: 2013Q4

REPORT INFORMATION
  Report Type: Report from Study
  Country: JP (occurrence: JP)
  Receive Date: 20120829
  Receipt Date: 20131106
  Transmission Date: 20140711
  Serious: Yes (Other)
  Sender: FDA-Public Use
  Company Number: JP-009507513-1208JPN007604

PATIENT
  Age: 56 Year
  Sex: Male
  Weight: 61 kg

DRUGS (6)
  1. PEGINTRON [Suspect]
     Indication: HEPATITIS C
     Dosage: 1.5 MICROGRAM PER KILOGRAM, QW
     Route: 058
     Dates: start: 20120614, end: 20120702
  2. REBETOL [Suspect]
     Indication: HEPATITIS C
     Dosage: CUMULATIVE DOSE: 1800 MG
     Route: 048
     Dates: start: 20120614, end: 20120702
  3. TELAVIC [Suspect]
     Indication: HEPATITIS C
     Dosage: CUMULATIVE DOSE:6750
     Route: 048
     Dates: start: 20120614, end: 20120702
  4. OXAROL [Concomitant]
     Dosage: DAILY DOSE UNKNOWN, FORMULATION: OIT
     Route: 061
  5. MYSLEE [Concomitant]
     Dosage: DOSE: 10MG/DAY, AS NEEDED, FORMULATION: POR
     Route: 048
     Dates: start: 20120615, end: 20120623
  6. ANTEBATE [Concomitant]
     Indication: RASH
     Dosage: UNK
     Route: 061
     Dates: start: 20120702, end: 20120727

REACTIONS (2)
  - Loss of consciousness [Recovered/Resolved]
  - Rash pruritic [Recovered/Resolved]
